FAERS Safety Report 14409415 (Version 2)
Quarter: 2018Q2

REPORT INFORMATION
  Report Type: Spontaneous
  Country: US (occurrence: US)
  Receive Date: 20180119
  Receipt Date: 20180620
  Transmission Date: 20180711
  Serious: Yes (Hospitalization, Other)
  Sender: FDA-Public Use
  Company Number: US-ASTRAZENECA-2018SE06904

PATIENT
  Age: 20915 Day
  Sex: Female
  Weight: 99.3 kg

DRUGS (31)
  1. BUPROPION. [Concomitant]
     Active Substance: BUPROPION
  2. HYDROCHLOROTHIAZIDE. [Concomitant]
     Active Substance: HYDROCHLOROTHIAZIDE
  3. DICLOFENAC SODIUM. [Concomitant]
     Active Substance: DICLOFENAC SODIUM
  4. ESCITALOPRAM [Concomitant]
     Active Substance: ESCITALOPRAM OXALATE
  5. PROVENTIL [Concomitant]
     Active Substance: ALBUTEROL
  6. ALPRAZOLAM. [Concomitant]
     Active Substance: ALPRAZOLAM
  7. CREON [Concomitant]
     Active Substance: PANCRELIPASE AMYLASE\PANCRELIPASE LIPASE\PANCRELIPASE PROTEASE
  8. AMLODIPINE [Concomitant]
     Active Substance: AMLODIPINE BESYLATE
  9. SPIRIVA [Concomitant]
     Active Substance: TIOTROPIUM BROMIDE MONOHYDRATE
  10. FUROSEMIDE. [Concomitant]
     Active Substance: FUROSEMIDE
  11. MELOXICAM. [Concomitant]
     Active Substance: MELOXICAM
  12. MORPHINE [Concomitant]
     Active Substance: MORPHINE
  13. GABAPENTIN. [Concomitant]
     Active Substance: GABAPENTIN
  14. ONDANSETRON [Concomitant]
     Active Substance: ONDANSETRON
  15. OMEPRAZOLE. [Suspect]
     Active Substance: OMEPRAZOLE
     Route: 048
     Dates: start: 2014, end: 2016
  16. PROAIR HFA [Concomitant]
     Active Substance: ALBUTEROL SULFATE
     Indication: WHEEZING
  17. OXYCODONE [Concomitant]
     Active Substance: OXYCODONE
  18. ZIPRASIDONE. [Concomitant]
     Active Substance: ZIPRASIDONE
  19. QVAR [Concomitant]
     Active Substance: BECLOMETHASONE DIPROPIONATE
  20. LOSARTAN. [Concomitant]
     Active Substance: LOSARTAN
  21. ATROVENT HFA [Concomitant]
     Active Substance: IPRATROPIUM BROMIDE
  22. BUTRANS [Concomitant]
     Active Substance: BUPRENORPHINE
  23. DOCQLACE [Concomitant]
     Active Substance: DOCUSATE SODIUM
  24. ASPIRIN. [Concomitant]
     Active Substance: ASPIRIN
  25. HYDROXYZINE HYDROCHLORIDE. [Concomitant]
     Active Substance: HYDROXYZINE HYDROCHLORIDE
  26. TRAZODONE [Concomitant]
     Active Substance: TRAZODONE HYDROCHLORIDE
  27. NEXIUM [Suspect]
     Active Substance: ESOMEPRAZOLE MAGNESIUM
     Indication: GASTROOESOPHAGEAL REFLUX DISEASE
     Route: 048
     Dates: start: 2009, end: 2013
  28. FLUOXETINE [Concomitant]
     Active Substance: FLUOXETINE HYDROCHLORIDE
  29. PROMETHAZINE [Concomitant]
     Active Substance: PROMETHAZINE\PROMETHAZINE HYDROCHLORIDE
  30. DICYCLOMINE [Concomitant]
     Active Substance: DICYCLOMINE HYDROCHLORIDE
  31. PREDNISONE. [Concomitant]
     Active Substance: PREDNISONE

REACTIONS (4)
  - Chronic kidney disease [Unknown]
  - Renal injury [Unknown]
  - Renal failure [Unknown]
  - Acute kidney injury [Unknown]

NARRATIVE: CASE EVENT DATE: 20131029
